FAERS Safety Report 7601881-0 (Version None)
Quarter: 2011Q3

REPORT INFORMATION
  Report Type: 
  Country: None (occurrence: None)
  Receive Date: 20110711
  Receipt Date: 20110630
  Transmission Date: 20111222
  Serious: Yes (Other)
  Sender: FDA-Public Use
  Company Number: PHEH2007US13367

PATIENT
  Sex: Male
  Weight: 101.59 kg

DRUGS (59)
  1. INTERFERON [Concomitant]
     Indication: MULTIPLE MYELOMA
     Dosage: 4 MILLION UNITS M-W-F
  2. GEMFIBROZIL [Concomitant]
     Indication: BLOOD TRIGLYCERIDES DECREASED
     Dosage: 600 MG, BID
  3. RADIATION THERAPY [Concomitant]
  4. COZAAR [Concomitant]
  5. PAROXETINE HCL [Concomitant]
     Indication: MOOD ALTERED
     Dosage: 5 MG, QD
  6. REVLIMID [Concomitant]
     Indication: MULTIPLE MYELOMA
     Dosage: 10MG / 5 MG, 1X DAILY ALT EVERY 3 WKS, 1 WK OFF
  7. VALTREX [Concomitant]
     Dosage: 500 MG, UNK
     Route: 048
  8. EPOGEN [Concomitant]
     Dosage: 4000 U, QW
  9. ACETYLCARNITINE [Concomitant]
  10. PRINIVIL [Concomitant]
  11. ALLOPURINOL [Concomitant]
     Dosage: 100 MG, QD
     Route: 048
  12. GLUCOSAMINE [Concomitant]
  13. B-50 [Concomitant]
     Dosage: 1 PER DAY
  14. SEPTRA [Concomitant]
  15. RANITIDINE [Concomitant]
     Dosage: 150 MG, UNK
     Route: 048
  16. ALBUTEROL SULFATE AUTOHALER [Concomitant]
  17. ZOMETA [Suspect]
     Indication: MULTIPLE MYELOMA
     Dosage: 4 MG, QMO
     Route: 042
     Dates: start: 20030423, end: 20060801
  18. CELEBREX [Concomitant]
     Dosage: 200 MG, UNK
     Route: 048
  19. ACYCLOVIR [Concomitant]
     Dosage: 800 MG, BID
  20. TOPROL-XL [Concomitant]
     Indication: HYPERTENSION
     Dosage: 25 MG / HS
  21. TESTOSTERONE [Concomitant]
     Dosage: 300 MG, QMO
  22. ZITHROMAX [Concomitant]
     Dosage: 250 MG, QD
     Route: 048
  23. BLOOD CELLS, PACKED HUMAN [Concomitant]
  24. INFLUENZA VACCINE [Concomitant]
  25. ALPHA LIPOIC ACID [Concomitant]
     Dosage: 300 MG, QD
  26. KETOCONAZOLE [Concomitant]
  27. PAXIL [Concomitant]
  28. LIPOFLAVONOID [Concomitant]
  29. CHONDROITIN A [Concomitant]
  30. CLINDAMYCIN [Concomitant]
  31. THALIDOMIDE [Concomitant]
     Dosage: 200 MG, QD
     Route: 048
  32. DYAZIDE [Concomitant]
     Dosage: 37.5 MG, QD
  33. HYDROCHLOROTHIAZIDE [Concomitant]
     Dosage: 25 MG, QD
  34. LASIX [Concomitant]
     Indication: FLUID RETENTION
     Dosage: 20 MG / DAILY PRN
  35. VITAMIN E [Concomitant]
     Dosage: 1000 IU, QD
  36. FERROUS SULFATE TAB [Concomitant]
  37. FOLIC ACID [Concomitant]
     Dosage: 800 UG, QD
  38. PROTONIX [Concomitant]
  39. CITRUCEL [Concomitant]
  40. FISH OIL [Concomitant]
     Dosage: 1000 MG DAILY
  41. EPHEDRINE [Concomitant]
     Dosage: UNK
  42. SMZ-TMP [Concomitant]
     Dosage: 800.150 MG, UNK
     Route: 048
  43. DECADRON                                /NET/ [Concomitant]
     Dosage: 40 MG, QD
     Route: 048
  44. FERROUS SULFATE TAB [Concomitant]
     Dosage: 65 MG EI
  45. ALLEGRA [Concomitant]
     Indication: SEASONAL ALLERGY
     Dosage: 60 MG, BID
  46. CHEMOTHERAPEUTICS NOS [Concomitant]
  47. XANAX [Concomitant]
     Dosage: UNK
  48. PIROXICAM [Concomitant]
     Indication: ARTHRALGIA
     Dosage: 20 MG, QD
  49. ASPIRIN [Concomitant]
     Indication: ANTICOAGULATION DRUG LEVEL
     Dosage: 325 MG, QD
  50. SIMVASTATIN [Concomitant]
     Indication: BLOOD CHOLESTEROL
     Dosage: 40 MG / 1-2 X DAILY
  51. DESONIDE [Concomitant]
     Indication: SEBORRHOEIC DERMATITIS
     Dosage: UNK / DAILY
     Route: 061
  52. SYNTHROID [Concomitant]
     Dosage: 0.025 / DAILY
  53. COMPAZINE [Concomitant]
  54. LIPITOR [Concomitant]
     Dosage: UNK
  55. LOMOTIL [Concomitant]
     Indication: DIARRHOEA
     Dosage: 25 MG, QD
  56. MULTIVITAMIN ^LAPPE^ [Concomitant]
  57. MOBIC [Concomitant]
  58. AEROBID [Concomitant]
  59. BENADRYL ^ACHE^ [Concomitant]
     Dosage: UNK
     Route: 042

REACTIONS (99)
  - MENTAL STATUS CHANGES [None]
  - BONE DISORDER [None]
  - GINGIVAL ULCERATION [None]
  - X-RAY ABNORMAL [None]
  - SEBORRHOEIC DERMATITIS [None]
  - DYSPNOEA [None]
  - ATRIAL TACHYCARDIA [None]
  - DIZZINESS [None]
  - CHEST PAIN [None]
  - DYSGEUSIA [None]
  - ARTHRALGIA [None]
  - ANXIETY DISORDER [None]
  - RETINAL DETACHMENT [None]
  - EYE PAIN [None]
  - EYE SWELLING [None]
  - INTERVERTEBRAL DISC PROTRUSION [None]
  - OSTEOARTHRITIS [None]
  - GINGIVAL RECESSION [None]
  - SPINAL OSTEOARTHRITIS [None]
  - VITAMIN B12 DEFICIENCY [None]
  - THROMBOTIC THROMBOCYTOPENIC PURPURA [None]
  - VENTRICULAR HYPERTROPHY [None]
  - HALLUCINATION [None]
  - HYPERCHOLESTEROLAEMIA [None]
  - DIVERTICULITIS [None]
  - FATIGUE [None]
  - BARRETT'S OESOPHAGUS [None]
  - PARAESTHESIA [None]
  - TINNITUS [None]
  - OSTEOPENIA [None]
  - VITREOUS FLOATERS [None]
  - MACULAR HOLE [None]
  - DYSPLASTIC NAEVUS [None]
  - NEPHROLITHIASIS [None]
  - VENOUS INSUFFICIENCY [None]
  - BONE LESION [None]
  - PLATELET COUNT DECREASED [None]
  - OSTEONECROSIS OF JAW [None]
  - DEPRESSION [None]
  - HAEMORRHOIDS [None]
  - DRY SKIN [None]
  - ANAEMIA [None]
  - HYPERSENSITIVITY [None]
  - BENIGN PROSTATIC HYPERPLASIA [None]
  - AFFECTIVE DISORDER [None]
  - SOFT TISSUE INFLAMMATION [None]
  - GINGIVAL PAIN [None]
  - ORAL PAIN [None]
  - THROMBOCYTOPENIA [None]
  - EXOSTOSIS [None]
  - DYSURIA [None]
  - HYPOAESTHESIA [None]
  - VISION BLURRED [None]
  - ATRIOVENTRICULAR BLOCK COMPLETE [None]
  - BRADYCARDIA [None]
  - CHRONIC OBSTRUCTIVE PULMONARY DISEASE [None]
  - MUSCLE SPASMS [None]
  - BASAL CELL CARCINOMA [None]
  - MELANOCYTIC NAEVUS [None]
  - SKIN FIBROSIS [None]
  - ADJUSTMENT DISORDER WITH MIXED ANXIETY AND DEPRESSED MOOD [None]
  - LOOSE TOOTH [None]
  - MULTIPLE MYELOMA [None]
  - AORTIC STENOSIS [None]
  - HYPOTHYROIDISM [None]
  - SYNCOPE [None]
  - DIARRHOEA [None]
  - GASTROOESOPHAGEAL REFLUX DISEASE [None]
  - HYPOACUSIS [None]
  - CONSTIPATION [None]
  - ACTINIC KERATOSIS [None]
  - ACROCHORDON [None]
  - AORTIC ARTERIOSCLEROSIS [None]
  - PULMONARY GRANULOMA [None]
  - RENAL IMPAIRMENT [None]
  - TOOTHACHE [None]
  - GAIT DISTURBANCE [None]
  - RASH PRURITIC [None]
  - OCULAR HYPERAEMIA [None]
  - SQUAMOUS CELL CARCINOMA OF SKIN [None]
  - AORTIC VALVE INCOMPETENCE [None]
  - UMBILICAL HERNIA [None]
  - CARDIAC MURMUR [None]
  - SINUS CONGESTION [None]
  - MYALGIA [None]
  - OSTEOPOROSIS [None]
  - CHOROIDAL DETACHMENT [None]
  - ACTINIC ELASTOSIS [None]
  - WOUND DEHISCENCE [None]
  - COUGH [None]
  - ABDOMINAL PAIN [None]
  - HAEMATOCRIT ABNORMAL [None]
  - HAEMOGLOBIN DECREASED [None]
  - VISUAL ACUITY REDUCED [None]
  - SKIN INFECTION [None]
  - BLOOD PRESSURE INCREASED [None]
  - BLOOD GLUCOSE INCREASED [None]
  - SKIN PAPILLOMA [None]
  - DERMAL CYST [None]
